FAERS Safety Report 12797763 (Version 2)
Quarter: 2016Q4

REPORT INFORMATION
  Report Type: Spontaneous
  Country: US (occurrence: US)
  Receive Date: 20160930
  Receipt Date: 20161107
  Transmission Date: 20170207
  Serious: No
  Sender: FDA-Public Use
  Company Number: US-GLAXOSMITHKLINE-US2016GSK142179

PATIENT
  Sex: Female
  Weight: 66.21 kg

DRUGS (4)
  1. SPIRIVA [Suspect]
     Active Substance: TIOTROPIUM BROMIDE MONOHYDRATE
  2. PROVENTIL [Suspect]
     Active Substance: ALBUTEROL
  3. FORADIL [Concomitant]
     Active Substance: FORMOTEROL FUMARATE
  4. SEREVENT DISKUS [Suspect]
     Active Substance: SALMETEROL XINAFOATE

REACTIONS (2)
  - Vision blurred [Unknown]
  - Dysphonia [Unknown]
